FAERS Safety Report 6881763-2 (Version None)
Quarter: 2010Q3

REPORT INFORMATION
  Report Type: 
  Country: None (occurrence: None)
  Receive Date: 20100727
  Receipt Date: 20100727
  Transmission Date: 20110219
  Serious: Yes (Life-Threatening)
  Sender: FDA-Public Use
  Company Number: None

PATIENT
  Age: 66 Year
  Sex: Female
  Weight: 61.2356 kg

DRUGS (1)
  1. MOMETASONE FUROATE [Suspect]
     Indication: INHALATION THERAPY
     Dosage: 30 MEASURED 2 DAILY PO
     Route: 048
     Dates: start: 20090101, end: 20100701

REACTIONS (3)
  - MEDICATION ERROR [None]
  - PRODUCT PACKAGING ISSUE [None]
  - PRODUCT PACKAGING QUANTITY ISSUE [None]
